FAERS Safety Report 25545361 (Version 1)
Quarter: 2025Q3

REPORT INFORMATION
  Report Type: Spontaneous
  Country: NP (occurrence: NP)
  Receive Date: 20250711
  Receipt Date: 20250711
  Transmission Date: 20251020
  Serious: Yes (Death)
  Sender: NOVARTIS
  Company Number: NP-002147023-NVSC2024NP171204

PATIENT
  Sex: Female

DRUGS (1)
  1. GLIVEC [Suspect]
     Active Substance: IMATINIB MESYLATE
     Indication: Philadelphia positive acute lymphocytic leukaemia
     Route: 065

REACTIONS (2)
  - Philadelphia positive acute lymphocytic leukaemia [Fatal]
  - Malignant neoplasm progression [Fatal]
